FAERS Safety Report 7253174-1 (Version None)
Quarter: 2011Q1

REPORT INFORMATION
  Report Type: 
  Country: None (occurrence: None)
  Receive Date: 20110129
  Receipt Date: 20100129
  Transmission Date: 20110831
  Serious: No
  Sender: FDA-Public Use
  Company Number: US-ABBOTT-10P-163-0623167-00

PATIENT
  Sex: Female
  Weight: 67.192 kg

DRUGS (2)
  1. HUMIRA [Suspect]
     Indication: PSORIASIS
     Dates: start: 20100113
  2. ORTHO-NOVUM 7/7/7-21 [Concomitant]
     Indication: CONTRACEPTION

REACTIONS (4)
  - SKIN IRRITATION [None]
  - SKIN BURNING SENSATION [None]
  - ANORECTAL DISCOMFORT [None]
  - DRUG INEFFECTIVE [None]
